FAERS Safety Report 8152351-5 (Version None)
Quarter: 2012Q1

REPORT INFORMATION
  Report Type: 
  Country: None (occurrence: None)
  Receive Date: 20120103
  Receipt Date: 20110929
  Transmission Date: 20120608
  Serious: No
  Sender: FDA-Public Use
  Company Number: AE-2011-001923

PATIENT
  Age: 53 Year
  Sex: Male
  Weight: 79.3795 kg

DRUGS (7)
  1. METOPROLOL TARTRATE [Concomitant]
  2. PEGASYS [Concomitant]
  3. INCIVEK [Suspect]
     Dosage: 2250 MG (750 MG,1 IN 8 HR)
     Dates: start: 20110924
  4. OMEPRAZOLE [Concomitant]
  5. VICTOZA (DRUG USED IN DIABETES) [Concomitant]
  6. RIBAVIRIN [Concomitant]
  7. LISINOPRIL [Concomitant]

REACTIONS (3)
  - DIARRHOEA [None]
  - ANORECTAL DISCOMFORT [None]
  - RECTAL HAEMORRHAGE [None]
